FAERS Safety Report 7245813-6 (Version None)
Quarter: 2011Q1

REPORT INFORMATION
  Report Type: 
  Country: None (occurrence: None)
  Receive Date: 20110126
  Receipt Date: 20101122
  Transmission Date: 20110831
  Serious: No
  Sender: FDA-Public Use
  Company Number: US-BAYER-2010-006711

PATIENT
  Sex: Female
  Weight: 82 kg

DRUGS (2)
  1. ALEVE (CAPLET) [Suspect]
     Indication: HEADACHE
     Dosage: DAILY DOSE 6 DF
     Route: 048
     Dates: start: 20101122
  2. SPIRONOLACTONE [Concomitant]
     Indication: ACNE

REACTIONS (1)
  - OVERDOSE [None]
